FAERS Safety Report 22045633 (Version 1)
Quarter: 2023Q1

REPORT INFORMATION
  Report Type: Spontaneous
  Country: CN (occurrence: CN)
  Receive Date: 20230228
  Receipt Date: 20230228
  Transmission Date: 20230417
  Serious: Yes (Other)
  Sender: FDA-Public Use
  Company Number: CN-PFIZER INC-PV202300036220

PATIENT
  Age: 8 Year
  Sex: Male

DRUGS (5)
  1. CYTARABINE [Suspect]
     Active Substance: CYTARABINE
     Indication: Acute lymphocytic leukaemia
     Dosage: 0.035 G, 1X/DAY
     Route: 037
     Dates: start: 20230208, end: 20230208
  2. CYTARABINE [Suspect]
     Active Substance: CYTARABINE
     Indication: Neoplasm
  3. CYTARABINE [Suspect]
     Active Substance: CYTARABINE
     Indication: Chemotherapy
  4. METHOTREXATE [Suspect]
     Active Substance: METHOTREXATE
     Indication: Acute lymphocytic leukaemia
     Dosage: 12.5 MG, 1X/DAY
     Route: 037
     Dates: start: 20230208, end: 20230208
  5. METHOTREXATE [Suspect]
     Active Substance: METHOTREXATE
     Indication: Chemotherapy

REACTIONS (3)
  - Alanine aminotransferase increased [Recovering/Resolving]
  - Aspartate aminotransferase increased [Recovering/Resolving]
  - Hepatic function abnormal [Recovering/Resolving]

NARRATIVE: CASE EVENT DATE: 20230214
